FAERS Safety Report 17534959 (Version 2)
Quarter: 2020Q2

REPORT INFORMATION
  Report Type: Spontaneous
  Country: FR (occurrence: FR)
  Receive Date: 20200312
  Receipt Date: 20200409
  Transmission Date: 20200713
  Serious: No
  Sender: FDA-Public Use
  Company Number: FR-AKCEA THERAPEUTICS-2019IS001578

PATIENT

DRUGS (1)
  1. TEGSEDI [Suspect]
     Active Substance: INOTERSEN SODIUM
     Indication: PRODUCT USED FOR UNKNOWN INDICATION
     Dosage: 284 MG, UNK
     Route: 058

REACTIONS (4)
  - Anxiety [Recovering/Resolving]
  - Product dose omission [Unknown]
  - Stress [Recovering/Resolving]
  - Injection site paraesthesia [Unknown]

NARRATIVE: CASE EVENT DATE: 20191230
